FAERS Safety Report 23792210 (Version 1)
Quarter: 2024Q2

REPORT INFORMATION
  Report Type: Spontaneous
  Country: US (occurrence: US)
  Receive Date: 20240429
  Receipt Date: 20240429
  Transmission Date: 20240716
  Serious: Yes (Other)
  Sender: FDA-Public Use
  Company Number: US-DRL-USA-LIT/USA/24/0006333

PATIENT

DRUGS (4)
  1. CLONIDINE [Suspect]
     Active Substance: CLONIDINE
     Indication: Maternal exposure timing unspecified
     Route: 064
  2. NIFEDIPINE [Suspect]
     Active Substance: NIFEDIPINE
     Indication: Maternal exposure timing unspecified
     Route: 064
  3. LABETALOL [Suspect]
     Active Substance: LABETALOL\LABETALOL HYDROCHLORIDE
     Indication: Maternal exposure timing unspecified
     Route: 064
  4. HYDRALAZINE [Suspect]
     Active Substance: HYDRALAZINE HYDROCHLORIDE
     Indication: Maternal exposure timing unspecified
     Route: 064

REACTIONS (2)
  - Premature baby [Unknown]
  - Foetal exposure during pregnancy [Unknown]
